FAERS Safety Report 5135160-0 (Version None)
Quarter: 2006Q4

REPORT INFORMATION
  Report Type: 
  Country: None (occurrence: None)
  Receive Date: 20060831
  Receipt Date: 20060501
  Transmission Date: 20070319
  Serious: Yes (Other)
  Sender: FDA-Public Use
  Company Number: 2006004153

PATIENT
  Age: 83 Year
  Sex: Male
  Weight: 79.3795 kg

DRUGS (8)
  1. DETROL LA [Suspect]
     Indication: HYPERTONIC BLADDER
     Dosage: 4 MG (4 MG, 1 IN 1 D) , ORAL
     Route: 048
     Dates: start: 20051201, end: 20060316
  2. PRUNE (PRUNE) [Suspect]
     Indication: CONSTIPATION
     Dosage: UNKNOWN, (UNKNOWN), UNKNOWN
  3. LANOXIN [Suspect]
     Indication: ILL-DEFINED DISORDER
     Dosage: UNKNOWN (UNKNOWN), UNKNOWN
  4. PLAVIX [Suspect]
     Indication: ILL-DEFINED DISORDER
     Dosage: UNKNOWN (UNKNOWN), UNKNOWN
  5. VALSARTAN [Suspect]
     Indication: HYPERTENSION
     Dosage: UNKNOWN (UNKNOWN), UNKNOWN
  6. ATENOLOL [Suspect]
     Indication: HYPERTENSION
     Dosage: UNKNOWN (UNKNOWN), UNKNOWN
  7. POTASSIUM (POTASSIUM) [Concomitant]
  8. XANAX [Concomitant]

REACTIONS (10)
  - ABDOMINAL PAIN [None]
  - CONSTIPATION [None]
  - DRUG EFFECT DECREASED [None]
  - DRUG INTERACTION [None]
  - DRY MOUTH [None]
  - DYSPEPSIA [None]
  - NOCTURIA [None]
  - STOMACH DISCOMFORT [None]
  - URINARY RETENTION [None]
  - URINARY TRACT INFECTION [None]
